FAERS Safety Report 8033721-2 (Version None)
Quarter: 2012Q1

REPORT INFORMATION
  Report Type: 
  Country: None (occurrence: None)
  Receive Date: 20120110
  Receipt Date: 20120105
  Transmission Date: 20120608
  Serious: Yes (Hospitalization, Other)
  Sender: FDA-Public Use
  Company Number: US-GLAXOSMITHKLINE-A0960218A

PATIENT
  Sex: Male

DRUGS (1)
  1. ZANTAC [Suspect]
     Route: 042

REACTIONS (2)
  - OVERDOSE [None]
  - INCORRECT ROUTE OF DRUG ADMINISTRATION [None]
